FAERS Safety Report 24462064 (Version 1)
Quarter: 2024Q4

REPORT INFORMATION
  Report Type: Report from Study
  Country: US (occurrence: US)
  Receive Date: 20241018
  Receipt Date: 20241018
  Transmission Date: 20250115
  Serious: No
  Sender: ROCHE
  Company Number: US-ROCHE-3563085

PATIENT
  Age: 66 Year
  Sex: Female

DRUGS (2)
  1. RITUXAN [Suspect]
     Active Substance: RITUXIMAB
     Indication: Rheumatoid arthritis
     Dosage: INFUSE 1000 DAY 1 AND DAY 15 THEN EVERY 6 MONTHS?DATE OF SERVICE: 19/JAN/2021, 02/FEB/2021, 19/JUL/2
     Route: 065
  2. FOSAMAX [Concomitant]
     Active Substance: ALENDRONATE SODIUM

REACTIONS (2)
  - Off label use [Unknown]
  - No adverse event [Unknown]
